FAERS Safety Report 19143164 (Version 1)
Quarter: 2021Q2

REPORT INFORMATION
  Report Type: Spontaneous
  Country: US (occurrence: US)
  Receive Date: 20210416
  Receipt Date: 20210416
  Transmission Date: 20210717
  Serious: No
  Sender: FDA-Public Use
  Company Number: US-TERSERA THERAPEUTICS LLC-2020TRS003875

PATIENT

DRUGS (4)
  1. XERMELO [Suspect]
     Active Substance: TELOTRISTAT ETHYL
     Indication: CARCINOID TUMOUR OF THE GASTROINTESTINAL TRACT
     Dosage: 250 MG, TID
     Route: 048
     Dates: start: 20201028
  2. XERMELO [Suspect]
     Active Substance: TELOTRISTAT ETHYL
     Dosage: 250 MG, TID (TAKE 1 TABLET BY MOUTH 3 TIMES DAILY)
     Route: 048
  3. OXYBUTYNIN. [Suspect]
     Active Substance: OXYBUTYNIN CHLORIDE
     Indication: BLADDER DISORDER
     Dosage: UNK
     Route: 065
     Dates: start: 202007
  4. OXYBUTYNIN. [Suspect]
     Active Substance: OXYBUTYNIN CHLORIDE
     Indication: URINARY TRACT INFECTION
     Dosage: 10 MG AT NIGHT AND 5 MG AT DAY
     Route: 065

REACTIONS (8)
  - Arthritis [Unknown]
  - Poor quality sleep [Unknown]
  - Red blood cell abnormality [Unknown]
  - White blood cell disorder [Unknown]
  - Peripheral swelling [Unknown]
  - Urinary tract infection [Not Recovered/Not Resolved]
  - Decreased appetite [Unknown]
  - Fluid retention [Unknown]

NARRATIVE: CASE EVENT DATE: 202103
